FAERS Safety Report 10384662 (Version 1)
Quarter: 2014Q3

REPORT INFORMATION
  Report Type: Report from Study
  Country: AR (occurrence: AR)
  Receive Date: 20140814
  Receipt Date: 20140814
  Transmission Date: 20150326
  Serious: Yes (Disabling)
  Sender: FDA-Public Use
  Company Number: AR-ABBVIE-14K-007-1270894-00

PATIENT
  Age: 28 Year
  Sex: Female

DRUGS (1)
  1. HUMIRA [Suspect]
     Active Substance: ADALIMUMAB
     Indication: RHEUMATOID ARTHRITIS
     Route: 058
     Dates: start: 20130731, end: 20140501

REACTIONS (2)
  - Arthralgia [Not Recovered/Not Resolved]
  - Cartilage injury [Recovering/Resolving]

NARRATIVE: CASE EVENT DATE: 20140527
